FAERS Safety Report 8818605 (Version 2)
Quarter: 2013Q1

REPORT INFORMATION
  Report Type: Report from Study
  Country: GB (occurrence: GB)
  Receive Date: 20121001
  Receipt Date: 20130215
  Transmission Date: 20140127
  Serious: Yes (Life-Threatening, Hospitalization)
  Sender: FDA-Public Use
  Company Number: GB-PFIZER INC-2012239713

PATIENT
  Age: 66 Year
  Sex: Male
  Weight: 139 kg

DRUGS (1)
  1. CELECOXIB [Suspect]
     Indication: OSTEOARTHRITIS
     Dosage: 100 MG, ALTERNATE DAY
     Route: 048
     Dates: start: 20100709

REACTIONS (1)
  - Oesophageal carcinoma [Not Recovered/Not Resolved]
